FAERS Safety Report 8308706-9 (Version None)
Quarter: 2012Q2

REPORT INFORMATION
  Report Type: 
  Country: None (occurrence: None)
  Receive Date: 20120424
  Receipt Date: 20120416
  Transmission Date: 20120825
  Serious: Yes (Other)
  Sender: FDA-Public Use
  Company Number: CA-AMGEN-CANSP2012015931

PATIENT
  Age: 55 Year
  Sex: Male

DRUGS (10)
  1. ENBREL [Suspect]
     Indication: ANKYLOSING SPONDYLITIS
     Dosage: 50 MG, QWK
     Dates: start: 20100322, end: 20120307
  2. METFORMIN HCL [Concomitant]
     Dosage: UNK
  3. VOLTAREN [Concomitant]
     Dosage: 50 MG, UNK
  4. VENTOLIN [Concomitant]
     Dosage: UNK
  5. DIOVAN [Concomitant]
     Dosage: UNK
  6. PRILOSEC [Concomitant]
     Dosage: UNK
  7. NITROGLYCERIN SPRAY [Concomitant]
     Dosage: 0.4 MG, UNK
  8. ASPIRIN [Concomitant]
     Dosage: 81 MG, UNK
  9. DOMPERIDONE [Concomitant]
     Dosage: UNK
  10. INSULIN [Concomitant]
     Dosage: UNK

REACTIONS (1)
  - PROSTATE CANCER [None]
